FAERS Safety Report 20819322 (Version 3)
Quarter: 2022Q3

REPORT INFORMATION
  Report Type: Spontaneous
  Country: US (occurrence: US)
  Receive Date: 20220512
  Receipt Date: 20220919
  Transmission Date: 20221027
  Serious: No
  Sender: FDA-Public Use
  Company Number: None

PATIENT
  Age: 81 Year
  Sex: Female

DRUGS (2)
  1. REVLIMID [Suspect]
     Active Substance: LENALIDOMIDE
     Indication: Plasma cell myeloma
     Dosage: TAKE 1 CAPSULE BY MOUTH DAILY ON DAYS 1-21 OF EACH 28-DAY CHEMOTHERAPY CYCLE
     Route: 048
     Dates: start: 20211021
  2. REVLIMID [Suspect]
     Active Substance: LENALIDOMIDE
     Indication: Hyponatraemia

REACTIONS (2)
  - Adverse event [Unknown]
  - Intentional product use issue [Unknown]
